FAERS Safety Report 13841601 (Version 1)
Quarter: 2017Q3

REPORT INFORMATION
  Report Type: Report from Study
  Country: US (occurrence: US)
  Receive Date: 20170807
  Receipt Date: 20170807
  Transmission Date: 20171127
  Serious: No
  Sender: FDA-Public Use
  Company Number: US-AMGEN-USASL2016048534

PATIENT
  Age: 63 Year
  Sex: Male

DRUGS (1)
  1. NPLATE [Suspect]
     Active Substance: ROMIPLOSTIM
     Indication: IMMUNE THROMBOCYTOPENIC PURPURA
     Dosage: UNK
     Route: 065
     Dates: start: 20160222

REACTIONS (12)
  - Arthralgia [Unknown]
  - Headache [Not Recovered/Not Resolved]
  - Balance disorder [Not Recovered/Not Resolved]
  - Chest discomfort [Unknown]
  - Burning sensation [Unknown]
  - Myalgia [Unknown]
  - Fatigue [Unknown]
  - Photosensitivity reaction [Unknown]
  - Dizziness postural [Unknown]
  - Platelet count decreased [Unknown]
  - Dyspnoea [Unknown]
  - Impaired work ability [Unknown]
